FAERS Safety Report 21846923 (Version 1)
Quarter: 2023Q1

REPORT INFORMATION
  Report Type: Spontaneous
  Country: US (occurrence: None)
  Receive Date: 20230111
  Receipt Date: 20230111
  Transmission Date: 20230417
  Serious: No
  Sender: FDA-Public Use
  Company Number: 2023A006452

PATIENT
  Age: 30928 Day
  Sex: Female
  Weight: 54.4 kg

DRUGS (2)
  1. BUDESONIDE\FORMOTEROL\GLYCOPYRRONIUM [Suspect]
     Active Substance: BUDESONIDE\FORMOTEROL\GLYCOPYRRONIUM
     Indication: Parkinson^s disease
     Dosage: 2 PUFFS TWICE A DAY
     Route: 055
     Dates: start: 20221228
  2. BUDESONIDE\FORMOTEROL\GLYCOPYRRONIUM [Suspect]
     Active Substance: BUDESONIDE\FORMOTEROL\GLYCOPYRRONIUM
     Indication: Wheezing
     Dosage: 2 PUFFS TWICE A DAY
     Route: 055
     Dates: start: 20221228

REACTIONS (5)
  - Wrong technique in device usage process [Unknown]
  - Product prescribing issue [Unknown]
  - Device delivery system issue [Unknown]
  - Device use issue [Unknown]
  - Device malfunction [Unknown]

NARRATIVE: CASE EVENT DATE: 20221228
